FAERS Safety Report 6110699-X (Version None)
Quarter: 2009Q1

REPORT INFORMATION
  Report Type: 
  Country: None (occurrence: None)
  Receive Date: 20090309
  Receipt Date: 20090224
  Transmission Date: 20090719
  Serious: Yes (Hospitalization)
  Sender: FDA-Public Use
  Company Number: 2009AL001124

PATIENT
  Age: 48 Year
  Sex: Female
  Weight: 73.9363 kg

DRUGS (8)
  1. DIGOXIN [Suspect]
     Dosage: 0.125MG, DAILY, PO
     Route: 048
  2. RENAGEL [Concomitant]
  3. METOPROLOL TARTRATE [Concomitant]
  4. HYDRALAZINE HCL [Concomitant]
  5. NEPHROCAPS [Concomitant]
  6. IMDUR [Concomitant]
  7. DARBEPOETIN [Concomitant]
  8. OSOSORBIDE MONITRATE [Concomitant]

REACTIONS (8)
  - CEREBRAL HAEMORRHAGE [None]
  - CEREBROVASCULAR ACCIDENT [None]
  - EJECTION FRACTION DECREASED [None]
  - GAIT DISTURBANCE [None]
  - HAEMODIALYSIS [None]
  - MENTAL STATUS CHANGES [None]
  - RENAL FAILURE ACUTE [None]
  - SYNCOPE [None]
